FAERS Safety Report 23712837 (Version 1)
Quarter: 2024Q2

REPORT INFORMATION
  Report Type: Other
  Country: US (occurrence: US)
  Receive Date: 20240405
  Receipt Date: 20240405
  Transmission Date: 20240716
  Serious: Yes (Death, Hospitalization)
  Sender: FDA-Public Use
  Company Number: US-Bion-012793

PATIENT
  Age: 74 Year
  Sex: Female

DRUGS (7)
  1. POTASSIUM CITRATE [Suspect]
     Active Substance: POTASSIUM CITRATE
     Indication: Ventricular fibrillation
  2. MAGNESIUM [Concomitant]
     Active Substance: MAGNESIUM
     Indication: Ventricular fibrillation
  3. AMIODARONE [Concomitant]
     Active Substance: AMIODARONE
     Indication: Ventricular fibrillation
  4. LIDOCAINE [Concomitant]
     Active Substance: LIDOCAINE
     Indication: Ventricular fibrillation
  5. POTASSIUM CITRATE [Suspect]
     Active Substance: POTASSIUM CITRATE
     Indication: Ventricular tachycardia
  6. AMIODARONE [Concomitant]
     Active Substance: AMIODARONE
     Indication: Ventricular tachycardia
  7. LIDOCAINE [Concomitant]
     Active Substance: LIDOCAINE
     Indication: Ventricular tachycardia

REACTIONS (1)
  - Drug ineffective [Fatal]
